FAERS Safety Report 19951445 (Version 2)
Quarter: 2025Q3

REPORT INFORMATION
  Report Type: Spontaneous
  Country: EU (occurrence: EU)
  Receive Date: 20211013
  Receipt Date: 20250731
  Transmission Date: 20251020
  Serious: Yes (Hospitalization, Other)
  Sender: PFIZER
  Company Number: None

PATIENT
  Sex: Male
  Weight: 0.59 kg

DRUGS (2)
  1. DOXORUBICIN HYDROCHLORIDE [Suspect]
     Active Substance: DOXORUBICIN HYDROCHLORIDE
     Indication: Ewing^s sarcoma
     Route: 064
  2. IFOSFAMIDE [Suspect]
     Active Substance: IFOSFAMIDE
     Indication: Ewing^s sarcoma
     Route: 064

REACTIONS (5)
  - Maternal exposure during pregnancy [Not Recovered/Not Resolved]
  - Renal failure neonatal [Recovering/Resolving]
  - Oligohydramnios [Not Recovered/Not Resolved]
  - Foetal growth restriction [Not Recovered/Not Resolved]
  - Premature baby [Unknown]

NARRATIVE: CASE EVENT DATE: 20210504
